FAERS Safety Report 9953860 (Version 1)
Quarter: 2014Q1

REPORT INFORMATION
  Report Type: Report from Study
  Country: LB (occurrence: LB)
  Receive Date: 20140304
  Receipt Date: 20140304
  Transmission Date: 20141002
  Serious: Yes (Death)
  Sender: FDA-Public Use
  Company Number: PHHY2013LB155632

PATIENT
  Age: 82 Year
  Sex: Male

DRUGS (2)
  1. ACLASTA [Suspect]
     Dosage: UNK
     Route: 042
  2. ANTIARRHYTHMIC AGENTS [Concomitant]
     Dosage: UNK

REACTIONS (1)
  - Death [Fatal]
